FAERS Safety Report 23084245 (Version 1)
Quarter: 2023Q4

REPORT INFORMATION
  Report Type: Spontaneous
  Country: CH (occurrence: CH)
  Receive Date: 20231019
  Receipt Date: 20231019
  Transmission Date: 20240109
  Serious: Yes (Hospitalization, Other)
  Sender: FDA-Public Use
  Company Number: None

PATIENT
  Age: 4 Week
  Sex: Male
  Weight: 2.97 kg

DRUGS (7)
  1. LISINOPRIL [Suspect]
     Active Substance: LISINOPRIL
     Indication: Supraventricular tachycardia
     Dosage: 1 MG/ML SUSPENSION PRODUCED FROM LISINOPRIL-MEPHA TABLETS (20 MG) ; IN TOTAL
     Route: 048
     Dates: start: 20230912, end: 20230912
  2. FUROSEMIDE [Concomitant]
     Active Substance: FUROSEMIDE
     Indication: Cardiac failure
     Dosage: 3 MILLIGRAM DAILY; FUROSEMID LSG. 10 MG/ML P.O. 3X1 MG/DAY FROM 19.08.2023, INDICATION: HEART FAILUR
     Route: 048
     Dates: start: 20230819
  3. FUROSEMIDE [Concomitant]
     Active Substance: FUROSEMIDE
     Indication: Polyuria
  4. CHLORPROMAZINE [Concomitant]
     Active Substance: CHLORPROMAZINE
     Indication: Delirium
     Dosage: CHLORPROMAZINE 40 MG/ML DROPS PO 1.5 MG - 0 - 1 MG FROM 08.09.2023, INDICATION: DELIRIUM/SEDATION WE
     Route: 048
     Dates: start: 20230908
  5. CHLORPROMAZINE [Concomitant]
     Active Substance: CHLORPROMAZINE
     Indication: Delirium
     Route: 048
     Dates: start: 20230908
  6. SPIRONOLACTONE [Concomitant]
     Active Substance: SPIRONOLACTONE
     Indication: Cardiac failure
     Dosage: 6 MILLIGRAM DAILY;  SPIRONOLACTONE 5 MG/ML SUSP. P.O. 2X3 MG FROM 21.08.2023, INDICATION: LONG-TERM
     Route: 048
     Dates: start: 20230821
  7. SPIRONOLACTONE [Concomitant]
     Active Substance: SPIRONOLACTONE
     Indication: Polyuria

REACTIONS (3)
  - Hypotension [Not Recovered/Not Resolved]
  - Hyponatraemia [Not Recovered/Not Resolved]
  - Renal failure [Not Recovered/Not Resolved]

NARRATIVE: CASE EVENT DATE: 20230912
